FAERS Safety Report 4324588-4 (Version None)
Quarter: 2004Q1

REPORT INFORMATION
  Report Type: 
  Country: None (occurrence: None)
  Receive Date: 20040323
  Receipt Date: 20040308
  Transmission Date: 20041129
  Serious: Yes (Other)
  Sender: FDA-Public Use
  Company Number: 2004-ES-00060ES

PATIENT
  Age: 52 Year
  Sex: Male

DRUGS (1)
  1. SPIRIVA [Suspect]
     Indication: BRONCHITIS CHRONIC
     Dosage: NR (18 MCG)
     Dates: start: 20031219

REACTIONS (3)
  - DIZZINESS [None]
  - THIRST [None]
  - VISUAL DISTURBANCE [None]
